FAERS Safety Report 6507371-0 (Version None)
Quarter: 2009Q4

REPORT INFORMATION
  Report Type: 
  Country: None (occurrence: None)
  Receive Date: 20091201
  Receipt Date: 20090324
  Transmission Date: 20100525
  Serious: Yes (Hospitalization)
  Sender: FDA-Public Use
  Company Number: 2009-193802-NL

PATIENT
  Age: 29 Year
  Sex: Female
  Weight: 81.6 kg

DRUGS (1)
  1. NUVARING [Suspect]
     Indication: CONTRACEPTION
     Dates: start: 20090126, end: 20090301

REACTIONS (2)
  - PULMONARY EMBOLISM [None]
  - THROMBOSIS [None]
